FAERS Safety Report 14981448 (Version 1)
Quarter: 2018Q2

REPORT INFORMATION
  Report Type: Spontaneous
  Country: JP (occurrence: JP)
  Receive Date: 20180606
  Receipt Date: 20180606
  Transmission Date: 20180711
  Serious: Yes (Hospitalization)
  Sender: FDA-Public Use
  Company Number: JP-SUN PHARMACEUTICAL INDUSTRIES LTD-2018R1-174980

PATIENT
  Age: 34 Year
  Sex: Female

DRUGS (2)
  1. DEXAMETHASONE. [Suspect]
     Active Substance: DEXAMETHASONE
     Indication: POEMS SYNDROME
     Route: 065
  2. LENALIDOMIDE [Suspect]
     Active Substance: LENALIDOMIDE
     Indication: POEMS SYNDROME
     Dosage: UNK
     Route: 065

REACTIONS (6)
  - Aphasia [Unknown]
  - Carotid artery stenosis [Unknown]
  - Cerebral ischaemia [Recovered/Resolved]
  - Hemiparesis [Unknown]
  - Cerebral artery stenosis [Unknown]
  - Transient ischaemic attack [Recovered/Resolved]
